FAERS Safety Report 8294647 (Version 3)
Quarter: 2013Q4

REPORT INFORMATION
  Report Type: Report from Study
  Country: US (occurrence: US)
  Receive Date: 20111216
  Receipt Date: 20131023
  Transmission Date: 20140711
  Serious: Yes (Hospitalization)
  Sender: FDA-Public Use
  Company Number: US-UCBSA-047480

PATIENT
  Age: 63 Year
  Sex: Male
  Weight: 88.9 kg

DRUGS (13)
  1. CIMZIA [Suspect]
     Indication: CROHN^S DISEASE
     Route: 058
     Dates: start: 20110509
  2. CIMZIA [Suspect]
     Indication: CROHN^S DISEASE
     Route: 058
     Dates: start: 20110404, end: 20110404
  3. CIMZIA [Suspect]
     Indication: CROHN^S DISEASE
     Route: 058
     Dates: start: 20100429, end: 20110307
  4. FLAGYL [Concomitant]
     Indication: CROHN^S DISEASE
     Dates: start: 20100331
  5. FLAGYL [Concomitant]
     Indication: CROHN^S DISEASE
     Dates: start: 20111228, end: 20120112
  6. PREDNISONE [Concomitant]
     Indication: CROHN^S DISEASE
     Dates: start: 20030127, end: 200306
  7. PREDNISONE [Concomitant]
     Indication: CROHN^S DISEASE
     Dosage: 10 MG. TAPERING DOSE.
     Dates: start: 20110809, end: 201110
  8. IBUPROFEN [Concomitant]
     Indication: CROHN^S DISEASE
  9. METHYLPREDNISOLONE [Concomitant]
  10. HYDROMORPHONE [Concomitant]
  11. DIPHENHYDRAMINE [Concomitant]
  12. OXYCODONE [Concomitant]
  13. BICILLIN [Concomitant]
     Indication: STREPTOCOCCAL INFECTION

REACTIONS (1)
  - Anal fistula [Recovering/Resolving]
